FAERS Safety Report 6547022-2 (Version None)
Quarter: 2010Q1

REPORT INFORMATION
  Report Type: 
  Country: None (occurrence: None)
  Receive Date: 20100122
  Receipt Date: 20100120
  Transmission Date: 20100710
  Serious: Yes (Other)
  Sender: FDA-Public Use
  Company Number: D0066139A

PATIENT

DRUGS (1)
  1. SULTANOL [Suspect]
     Dosage: 1PUFF TWELVE TIMES PER DAY
     Route: 055

REACTIONS (2)
  - HYPOKALAEMIA [None]
  - OVERDOSE [None]
